FAERS Safety Report 9116268 (Version 1)
Quarter: 2013Q1

REPORT INFORMATION
  Report Type: Spontaneous
  Country: US (occurrence: US)
  Receive Date: 20130225
  Receipt Date: 20130225
  Transmission Date: 20140127
  Serious: Yes (Hospitalization, Other)
  Sender: FDA-Public Use
  Company Number: US-AMGEN-USASP2013011531

PATIENT
  Age: 59 Year
  Sex: Female

DRUGS (3)
  1. ENBREL [Suspect]
     Indication: RHEUMATOID ARTHRITIS
     Dosage: 50 MG, QWK
     Dates: start: 20050808, end: 20130214
  2. RITUXAN [Concomitant]
     Dosage: UNK
  3. REMICADE [Concomitant]
     Dosage: UNK

REACTIONS (11)
  - Squamous cell carcinoma [Recovered/Resolved]
  - Thyroid cancer [Not Recovered/Not Resolved]
  - Osteoarthritis [Recovered/Resolved]
  - Cholecystectomy [Recovered/Resolved]
  - Muscle injury [Recovered/Resolved]
  - Barrett^s oesophagus [Not Recovered/Not Resolved]
  - Oesophageal carcinoma [Not Recovered/Not Resolved]
  - Post procedural swelling [Not Recovered/Not Resolved]
  - Renal disorder [Not Recovered/Not Resolved]
  - Rheumatoid arthritis [Recovered/Resolved]
  - Goitre [Not Recovered/Not Resolved]
